FAERS Safety Report 6517988-5 (Version None)
Quarter: 2009Q4

REPORT INFORMATION
  Report Type: 
  Country: None (occurrence: None)
  Receive Date: 20091218
  Receipt Date: 20091203
  Transmission Date: 20100525
  Serious: Yes (Hospitalization)
  Sender: FDA-Public Use
  Company Number: 8053270

PATIENT
  Sex: Female
  Weight: 61 kg

DRUGS (8)
  1. CERTOLIZUAMB PEGOL (CERTOLIZUMAB PEGOL) [Suspect]
     Indication: RHEUMATOID ARTHRITIS
     Dosage: SEE IMAGE
     Route: 058
     Dates: start: 20050523, end: 20060509
  2. CERTOLIZUAMB PEGOL (CERTOLIZUMAB PEGOL) [Suspect]
     Indication: RHEUMATOID ARTHRITIS
     Dosage: SEE IMAGE
     Route: 058
     Dates: start: 20060522, end: 20071119
  3. CERTOLIZUAMB PEGOL (CERTOLIZUMAB PEGOL) [Suspect]
     Indication: RHEUMATOID ARTHRITIS
     Dosage: SEE IMAGE
     Route: 058
     Dates: start: 20071203, end: 20091005
  4. CERTOLIZUAMB PEGOL (CERTOLIZUMAB PEGOL) [Suspect]
     Indication: RHEUMATOID ARTHRITIS
     Dosage: SEE IMAGE
     Route: 058
     Dates: start: 20091116
  5. METHOTREXATE [Concomitant]
  6. FOLIC ACID [Concomitant]
  7. MELOXICAM [Concomitant]
  8. REGULON [Concomitant]

REACTIONS (7)
  - BREAST CYST [None]
  - BRONCHITIS [None]
  - GASTRODUODENITIS [None]
  - OVARIAN CYST [None]
  - PHARYNGITIS [None]
  - POSTOPERATIVE WOUND COMPLICATION [None]
  - WOUND INFECTION STAPHYLOCOCCAL [None]
